FAERS Safety Report 6216001-7 (Version None)
Quarter: 2009Q2

REPORT INFORMATION
  Report Type: 
  Country: None (occurrence: None)
  Receive Date: 20090605
  Receipt Date: 20090528
  Transmission Date: 20091009
  Serious: Yes (Death, Hospitalization)
  Sender: FDA-Public Use
  Company Number: IN-BRISTOL-MYERS SQUIBB COMPANY-14592679

PATIENT
  Age: 48 Year
  Sex: Male

DRUGS (4)
  1. DASATINIB [Suspect]
     Indication: CHRONIC MYELOID LEUKAEMIA
     Dosage: INTERRUPTED ON 17APR09, RESTARTED ON 12MAY2009
     Route: 048
     Dates: start: 20081017
  2. ATENOLOL [Concomitant]
     Dates: start: 20040101
  3. GLYBURIDE AND METFORMIN HCL [Concomitant]
     Dosage: 22APR09-ONG
     Dates: start: 20040101
  4. CLOPIDOGREL BISULFATE [Concomitant]
     Dosage: TABS
     Dates: start: 20090422

REACTIONS (2)
  - CARDIAC FAILURE CONGESTIVE [None]
  - DEATH [None]
